FAERS Safety Report 16399120 (Version 6)
Quarter: 2025Q1

REPORT INFORMATION
  Report Type: Spontaneous
  Country: US (occurrence: US)
  Receive Date: 20190606
  Receipt Date: 20250225
  Transmission Date: 20250409
  Serious: Yes (Other)
  Sender: PFIZER
  Company Number: US-PFIZER INC-2019241933

PATIENT
  Age: 55 Year
  Sex: Male
  Weight: 99 kg

DRUGS (2)
  1. BOSULIF [Suspect]
     Active Substance: BOSUTINIB MONOHYDRATE
     Indication: Chronic myeloid leukaemia
     Dosage: 400 MG, 1X/DAY (TAKE 400 MG BY MOUTH DAILY)
     Route: 048
     Dates: start: 20181119
  2. PROTONIX [Concomitant]
     Active Substance: PANTOPRAZOLE SODIUM
     Dosage: 40 MG, DAILY (TAKE 1 TABLET (40 MG) BY MOUTH 30 MINUTES BEFORE BREAKFAST)
     Route: 048

REACTIONS (5)
  - Pancreatitis acute [Unknown]
  - Diarrhoea [Unknown]
  - Hyponatraemia [Unknown]
  - Headache [Unknown]
  - Fatigue [Not Recovered/Not Resolved]

NARRATIVE: CASE EVENT DATE: 20181119
